FAERS Safety Report 14404891 (Version 3)
Quarter: 2018Q2

REPORT INFORMATION
  Report Type: Report from Study
  Country: None (occurrence: US)
  Receive Date: 20180118
  Receipt Date: 20180416
  Transmission Date: 20180711
  Serious: Yes (Hospitalization)
  Sender: FDA-Public Use
  Company Number: US-ABBVIE-18K-163-2225142-00

PATIENT
  Age: 75 Year
  Sex: Male
  Weight: 73.73 kg

DRUGS (4)
  1. OMEPRAZOLE. [Concomitant]
     Active Substance: OMEPRAZOLE
     Indication: DYSPEPSIA
  2. HUMIRA [Suspect]
     Active Substance: ADALIMUMAB
     Indication: CROHN^S DISEASE
     Route: 058
     Dates: start: 2016, end: 201701
  3. VIIBRYD [Concomitant]
     Active Substance: VILAZODONE HYDROCHLORIDE
     Indication: ANTIDEPRESSANT THERAPY
  4. LAMIVUDINE (HBV) [Concomitant]
     Active Substance: LAMIVUDINE
     Indication: HEPATITIS B

REACTIONS (8)
  - Hypophagia [Unknown]
  - Dehydration [Unknown]
  - Bacterial infection [Recovered/Resolved]
  - Intestinal obstruction [Recovered/Resolved]
  - Abdominal distension [Unknown]
  - Fluid intake reduced [Unknown]
  - Flatulence [Unknown]
  - Diarrhoea [Recovered/Resolved]

NARRATIVE: CASE EVENT DATE: 20171206
